FAERS Safety Report 23318523 (Version 1)
Quarter: 2023Q4

REPORT INFORMATION
  Report Type: Spontaneous
  Country: US (occurrence: US)
  Receive Date: 20231220
  Receipt Date: 20231220
  Transmission Date: 20240109
  Serious: No
  Sender: FDA-Public Use
  Company Number: US-SA-SAC20231213000078

PATIENT
  Sex: Male

DRUGS (1)
  1. DUPIXENT [Suspect]
     Active Substance: DUPILUMAB
     Indication: Eczema
     Dosage: DOSE AND FREQUENCY: - 300MG/ EVERY 14 DAYS
     Route: 058

REACTIONS (4)
  - Lacrimation increased [Unknown]
  - Memory impairment [Unknown]
  - Eye disorder [Unknown]
  - Pruritus [Unknown]
